FAERS Safety Report 8836649 (Version 1)
Quarter: 2012Q4

REPORT INFORMATION
  Report Type: Spontaneous
  Country: US (occurrence: None)
  Receive Date: 20121009
  Receipt Date: 20121009
  Transmission Date: 20130627
  Serious: Yes (Life-Threatening, Hospitalization)
  Sender: FDA-Public Use
  Company Number: IN-MACLEODS PHARMA-000010

PATIENT
  Age: 11 Month
  Sex: Male
  Weight: 6 kg

DRUGS (1)
  1. AMLODIPINE (AMLODIPINE) [Suspect]

REACTIONS (22)
  - Toxicity to various agents [None]
  - Medication error [None]
  - Blood glucose increased [None]
  - Shock [None]
  - Renal failure [None]
  - Cardiac failure congestive [None]
  - Metabolic acidosis [None]
  - Respiratory distress [None]
  - Anaemia [None]
  - Hepatic enzyme increased [None]
  - Vomiting [None]
  - Decreased activity [None]
  - Lethargy [None]
  - Loss of consciousness [None]
  - Pulse absent [None]
  - Hepatomegaly [None]
  - Pulmonary oedema [None]
  - Peritoneal dialysis [None]
  - Drug dispensing error [None]
  - Wrong drug administered [None]
  - Heart sounds abnormal [None]
  - Jaundice [None]
